FAERS Safety Report 10021970 (Version 1)
Quarter: 2014Q1

REPORT INFORMATION
  Report Type: Spontaneous
  Country: US (occurrence: None)
  Receive Date: 20140318
  Receipt Date: 20140318
  Transmission Date: 20141002
  Serious: Yes (Other)
  Sender: FDA-Public Use
  Company Number: None

PATIENT
  Age: 63 Year
  Sex: Female
  Weight: 65.77 kg

DRUGS (1)
  1. SCOPOLAMINE [Suspect]
     Indication: PROPHYLAXIS OF NAUSEA AND VOMITING
     Route: 061

REACTIONS (11)
  - Dizziness [None]
  - Vertigo [None]
  - Sensation of heaviness [None]
  - Asthenia [None]
  - Heart rate decreased [None]
  - Dry mouth [None]
  - Balance disorder [None]
  - Mydriasis [None]
  - Hallucination [None]
  - Fear [None]
  - Asthenia [None]
